FAERS Safety Report 6413460-1 (Version None)
Quarter: 2009Q4

REPORT INFORMATION
  Report Type: 
  Country: None (occurrence: None)
  Receive Date: 20091026
  Receipt Date: 20091019
  Transmission Date: 20100525
  Serious: Yes (Disabling)
  Sender: FDA-Public Use
  Company Number: JP-AVENTIS-200912632JP

PATIENT
  Age: 79 Year
  Sex: Male
  Weight: 72.4 kg

DRUGS (7)
  1. TAXOTERE [Suspect]
     Route: 041
     Dates: start: 20090901, end: 20090901
  2. PROTECADIN [Concomitant]
     Indication: GASTRIC ULCER
     Route: 048
     Dates: start: 20080908
  3. WARFARIN SODIUM [Concomitant]
     Indication: ATRIAL FIBRILLATION
     Route: 048
     Dates: start: 20080908
  4. PREDNISOLONE [Concomitant]
     Indication: PREMEDICATION
     Route: 048
     Dates: start: 20080908
  5. LASIX [Concomitant]
     Route: 048
     Dates: start: 20080908
  6. NAPAGELN [Concomitant]
     Route: 061
     Dates: start: 20080908
  7. ASTAT [Concomitant]
     Route: 061
     Dates: start: 20080908

REACTIONS (1)
  - BLINDNESS UNILATERAL [None]
